FAERS Safety Report 13924669 (Version 1)
Quarter: 2017Q3

REPORT INFORMATION
  Report Type: Spontaneous
  Country: RS (occurrence: RS)
  Receive Date: 20170831
  Receipt Date: 20170831
  Transmission Date: 20171127
  Serious: Yes (Other)
  Sender: FDA-Public Use
  Company Number: RS-BAYER-2017-162570

PATIENT
  Age: 62 Year
  Sex: Male

DRUGS (1)
  1. ASPIRIN PROTECT 100 MG [Suspect]
     Active Substance: ASPIRIN
     Indication: PERIPHERAL ARTERIAL OCCLUSIVE DISEASE
     Dosage: UNK

REACTIONS (4)
  - Deep vein thrombosis [None]
  - Pulmonary embolism [Recovering/Resolving]
  - Pneumonia [None]
  - Gastrointestinal ulcer haemorrhage [None]
